FAERS Safety Report 20499921 (Version 1)
Quarter: 2022Q1

REPORT INFORMATION
  Report Type: Spontaneous
  Country: US (occurrence: US)
  Receive Date: 20220222
  Receipt Date: 20220222
  Transmission Date: 20220423
  Serious: Yes (Hospitalization)
  Sender: FDA-Public Use
  Company Number: US-ALTATHERA-2022ALTLIT00001

PATIENT
  Age: 38 Year
  Sex: Male

DRUGS (1)
  1. SOTALOL HYDROCHLORIDE [Suspect]
     Active Substance: SOTALOL HYDROCHLORIDE
     Indication: Cardiac ablation
     Route: 065

REACTIONS (2)
  - Electrocardiogram QRS complex [Unknown]
  - Supraventricular tachycardia [Unknown]
